FAERS Safety Report 22245020 (Version 1)
Quarter: 2023Q2

REPORT INFORMATION
  Report Type: Spontaneous
  Country: US (occurrence: US)
  Receive Date: 20230424
  Receipt Date: 20230424
  Transmission Date: 20230721
  Serious: No
  Sender: FDA-Public Use
  Company Number: US-ABBVIE-4723881

PATIENT
  Age: 53 Year
  Sex: Female

DRUGS (2)
  1. HUMIRA [Suspect]
     Active Substance: ADALIMUMAB
     Indication: Uveitic glaucoma
     Route: 058
     Dates: start: 20221010
  2. HUMIRA [Suspect]
     Active Substance: ADALIMUMAB
     Indication: HLA-B*27 positive

REACTIONS (4)
  - HLA-B*27 positive [Unknown]
  - Uveitic glaucoma [Unknown]
  - Wrong technique in product usage process [Unknown]
  - Accidental exposure to product [Unknown]

NARRATIVE: CASE EVENT DATE: 20230325
